FAERS Safety Report 5800699-9 (Version None)
Quarter: 2008Q3

REPORT INFORMATION
  Report Type: 
  Country: None (occurrence: None)
  Receive Date: 20080703
  Receipt Date: 20080625
  Transmission Date: 20090109
  Serious: Yes (Life-Threatening, Hospitalization)
  Sender: FDA-Public Use
  Company Number: PT-WYE-H04314008

PATIENT
  Sex: Female

DRUGS (3)
  1. CORDARONE [Suspect]
     Indication: ATRIAL FIBRILLATION
     Route: 048
     Dates: start: 20061030, end: 20070515
  2. CANDESARTAN CILEXETIL [Concomitant]
     Indication: HYPERTENSION
     Dosage: 8 MG/FREQUENCY NOT PROVIDED
     Route: 048
     Dates: start: 20061101
  3. WARFARIN SODIUM [Concomitant]
     Indication: ANTICOAGULANT THERAPY
     Dosage: 2.5 MG/FREQUENCY NOT PROVIDED
     Route: 048
     Dates: start: 20061101

REACTIONS (5)
  - CEREBELLAR SYNDROME [None]
  - COGNITIVE DISORDER [None]
  - DISORIENTATION [None]
  - DYSCALCULIA [None]
  - DYSGRAPHIA [None]
